FAERS Safety Report 8543249-9 (Version None)
Quarter: 2012Q3

REPORT INFORMATION
  Report Type: 
  Country: None (occurrence: None)
  Receive Date: 20120716
  Receipt Date: 20120702
  Transmission Date: 20120928
  Serious: Yes (Other)
  Sender: FDA-Public Use
  Company Number: 2012P1048132

PATIENT
  Age: 57 Year
  Sex: Male
  Weight: 106 kg

DRUGS (4)
  1. MIDAZOLAM [Concomitant]
  2. FENTANYL CITRATE [Suspect]
     Indication: BREAKTHROUGH PAIN
     Dosage: 25 UG;QH; 500 UG;QH; 50 UG; QH
  3. OXYCODONE HCL [Concomitant]
  4. HYDROMORPHINE HYDROCHLORIDE [Concomitant]

REACTIONS (1)
  - HYPERAESTHESIA [None]
